FAERS Safety Report 20071224 (Version 1)
Quarter: 2021Q4

REPORT INFORMATION
  Report Type: Spontaneous
  Country: FR (occurrence: FR)
  Receive Date: 20211115
  Receipt Date: 20211115
  Transmission Date: 20220303
  Serious: Yes (Other)
  Sender: FDA-Public Use
  Company Number: FR-JNJFOC-20211055882

PATIENT
  Age: 89 Year
  Sex: Female

DRUGS (3)
  1. DEXAMETHASONE [Suspect]
     Active Substance: DEXAMETHASONE
     Indication: Plasma cell myeloma
     Route: 065
     Dates: start: 20200128, end: 20200211
  2. DARZALEX [Suspect]
     Active Substance: DARATUMUMAB
     Indication: Plasma cell myeloma
     Dosage: WEEKLY FOR THE 8 FIRST INJECTIONS, BI-MONTHLY FOR 8 FOLLOWING THEN MONTHLY BY
     Route: 065
     Dates: start: 20200128, end: 20200211
  3. VELCADE [Suspect]
     Active Substance: BORTEZOMIB
     Indication: Plasma cell myeloma
     Route: 065
     Dates: start: 20200128, end: 20200211

REACTIONS (2)
  - Decreased appetite [Unknown]
  - Asthenia [Unknown]
